FAERS Safety Report 10166761 (Version 3)
Quarter: 2014Q2

REPORT INFORMATION
  Report Type: Spontaneous
  Country: JP (occurrence: JP)
  Receive Date: 20140512
  Receipt Date: 20140623
  Transmission Date: 20141212
  Serious: Yes (Hospitalization)
  Sender: FDA-Public Use
  Company Number: JP-SA-2014SA051271

PATIENT
  Age: 79 Year
  Sex: Male

DRUGS (2)
  1. IMMUCYST [Suspect]
     Indication: URINARY TRACT NEOPLASM
     Dosage: 80-81 MG/40 ML OF SALINE INTO THE BLADDER 6 TO 8 TIMES A WEEK
     Route: 043
     Dates: start: 20130507, end: 20130618
  2. LOXONIN [Suspect]
     Indication: PRODUCT USED FOR UNKNOWN INDICATION
     Route: 065

REACTIONS (2)
  - Contracted bladder [Recovered/Resolved]
  - Bladder irritation [Recovered/Resolved]
